FAERS Safety Report 8373819-2 (Version None)
Quarter: 2012Q2

REPORT INFORMATION
  Report Type: 
  Country: None (occurrence: None)
  Receive Date: 20120521
  Receipt Date: 20120508
  Transmission Date: 20120825
  Serious: Yes (Hospitalization)
  Sender: FDA-Public Use
  Company Number: US-ACTELION-A-US2012-65780

PATIENT

DRUGS (5)
  1. COUMADIN [Concomitant]
  2. DIURETICS [Concomitant]
  3. ADCIRCA [Suspect]
  4. TRACLEER [Suspect]
     Indication: PULMONARY ARTERIAL HYPERTENSION
     Dosage: UNK
     Route: 048
  5. REMODULIN [Suspect]
     Dosage: 20 UG/KG, PER MIN
     Route: 058
     Dates: start: 20120218

REACTIONS (2)
  - INJECTION SITE INFECTION [None]
  - FLUID RETENTION [None]
